FAERS Safety Report 4862771-X (Version None)
Quarter: 2005Q4

REPORT INFORMATION
  Report Type: 
  Country: None (occurrence: None)
  Receive Date: 20051219
  Receipt Date: 20051207
  Transmission Date: 20060501
  Serious: Yes (Hospitalization, Other)
  Sender: FDA-Public Use
  Company Number: 207832

PATIENT
  Age: 64 Year
  Sex: Female
  Weight: 81.6475 kg

DRUGS (9)
  1. AVONEX [Suspect]
     Indication: MULTIPLE SCLEROSIS
     Dosage: 30 UG; QW; IM
     Route: 030
     Dates: start: 20000401, end: 20031101
  2. AVONEX [Suspect]
     Indication: MULTIPLE SCLEROSIS
     Dosage: 30 UG; QW; IM
     Route: 030
     Dates: start: 20031101
  3. NEURONTIN [Concomitant]
  4. FLEXTRA [Concomitant]
  5. LORCET-HD [Concomitant]
  6. HYZAAR [Concomitant]
  7. PRAVACHOL [Concomitant]
  8. AMITRYPLIN [Concomitant]
  9. ANSAID [Concomitant]

REACTIONS (14)
  - BREAST CANCER IN SITU [None]
  - BREAST CANCER STAGE II [None]
  - BREAST NECROSIS [None]
  - CARDIOMYOPATHY [None]
  - GRANULOMA [None]
  - HEPATIC STEATOSIS [None]
  - HYPERTENSION [None]
  - JAW DISORDER [None]
  - METASTASES TO LYMPH NODES [None]
  - OESTROGEN RECEPTOR ASSAY POSITIVE [None]
  - OSTEOARTHRITIS [None]
  - PROGESTERONE RECEPTOR ASSAY POSITIVE [None]
  - SPINAL OSTEOARTHRITIS [None]
  - SPLEEN DISORDER [None]
